FAERS Safety Report 9397216 (Version 1)
Quarter: 2013Q3

REPORT INFORMATION
  Report Type: Spontaneous
  Country: US (occurrence: US)
  Receive Date: 20130712
  Receipt Date: 20130712
  Transmission Date: 20140515
  Serious: No
  Sender: FDA-Public Use
  Company Number: US-PFIZER INC-2013202741

PATIENT
  Age: 50 Year
  Sex: Male

DRUGS (3)
  1. XELJANZ [Suspect]
     Dosage: 5 MG (1 TABLET), 2X/DAY
     Route: 048
  2. PREDNISONE [Concomitant]
     Dosage: 10 MG
  3. OXYCODONE [Concomitant]
     Dosage: 10 MG

REACTIONS (3)
  - Nausea [Unknown]
  - Nightmare [Unknown]
  - Nasopharyngitis [Unknown]
